FAERS Safety Report 11213682 (Version 1)
Quarter: 2015Q2

REPORT INFORMATION
  Report Type: Spontaneous
  Country: ES (occurrence: ES)
  Receive Date: 20150623
  Receipt Date: 20150623
  Transmission Date: 20150821
  Serious: Yes (Hospitalization)
  Sender: FDA-Public Use
  Company Number: ES-MYLANLABS-2015M1020900

PATIENT

DRUGS (1)
  1. METHOTREXATE [Suspect]
     Active Substance: METHOTREXATE
     Indication: PSORIASIS
     Dosage: 10 MG DAILY
     Route: 048

REACTIONS (7)
  - Skin ulcer [Recovering/Resolving]
  - Incorrect dosage administered [Unknown]
  - Mouth ulceration [Recovering/Resolving]
  - Genital ulceration [Recovering/Resolving]
  - Hepatic enzyme increased [Recovering/Resolving]
  - Accidental overdose [Unknown]
  - Platelet count decreased [Recovering/Resolving]
